FAERS Safety Report 6496662-8 (Version None)
Quarter: 2009Q4

REPORT INFORMATION
  Report Type: 
  Country: None (occurrence: None)
  Receive Date: 20091210
  Receipt Date: 20091127
  Transmission Date: 20100525
  Serious: Yes (Other)
  Sender: FDA-Public Use
  Company Number: 310002L09TUR

PATIENT
  Age: 28 Year
  Sex: Female

DRUGS (3)
  1. GONAL-F [Suspect]
     Indication: OVARIAN HYPERSTIMULATION SYNDROME
     Dosage: 187.50 IU
     Route: 015
  2. CHORIONIC GONADOTROPIN [Suspect]
     Indication: OVARIAN HYPERSTIMULATION SYNDROME
  3. LUCIRIN (LEUPRORELIN ACETATE) [Concomitant]

REACTIONS (4)
  - ABORTION INDUCED [None]
  - CAESAREAN SECTION [None]
  - REACTOGENICITY EVENT [None]
  - SINGLE UMBILICAL ARTERY [None]
